FAERS Safety Report 5680362-8 (Version None)
Quarter: 2008Q1

REPORT INFORMATION
  Report Type: 
  Country: None (occurrence: None)
  Receive Date: 20080326
  Receipt Date: 20080314
  Transmission Date: 20080703
  Serious: Yes (Hospitalization, Other)
  Sender: FDA-Public Use
  Company Number: US-AMGEN-KDL244917

PATIENT
  Sex: Female

DRUGS (3)
  1. ENBREL [Suspect]
     Indication: RHEUMATOID ARTHRITIS
     Route: 058
     Dates: start: 20020101
  2. ENBREL [Suspect]
     Indication: PSORIATIC ARTHROPATHY
  3. PREDNISONE TAB [Concomitant]
     Route: 048
     Dates: start: 20020101

REACTIONS (8)
  - ARTHRALGIA [None]
  - INTRA-UTERINE DEATH [None]
  - PLACENTA PRAEVIA [None]
  - POSTPARTUM HAEMORRHAGE [None]
  - PRE-ECLAMPSIA [None]
  - PREMATURE BABY [None]
  - SURGICAL PROCEDURE REPEATED [None]
  - VULVAL CANCER [None]
